FAERS Safety Report 8598407-4 (Version None)
Quarter: 2012Q3

REPORT INFORMATION
  Report Type: 
  Country: None (occurrence: None)
  Receive Date: 20120816
  Receipt Date: 20120807
  Transmission Date: 20120928
  Serious: Yes (Hospitalization)
  Sender: FDA-Public Use
  Company Number: US-ABBOTT-12P-163-0939231-00

PATIENT
  Sex: Male
  Weight: 65.83 kg

DRUGS (18)
  1. HUMIRA [Suspect]
     Indication: ANKYLOSING SPONDYLITIS
     Dates: start: 20070101, end: 20100401
  2. FOLIC ACID [Concomitant]
     Indication: VITAMIN SUPPLEMENTATION
  3. SIMVASTATIN [Concomitant]
     Indication: PRODUCT USED FOR UNKNOWN INDICATION
  4. CALCIUM [Concomitant]
     Indication: PRODUCT USED FOR UNKNOWN INDICATION
  5. HUMIRA [Suspect]
     Indication: RHEUMATOID ARTHRITIS
  6. SIMVASTATIN [Concomitant]
     Indication: HYPERLIPIDAEMIA
  7. HUMIRA [Suspect]
     Indication: RHEUMATOID ARTHRITIS
     Dates: start: 20120523
  8. FISH OIL [Concomitant]
     Indication: SUPPLEMENTATION THERAPY
  9. INDOMETHACIN [Concomitant]
     Indication: PRODUCT USED FOR UNKNOWN INDICATION
  10. AMLODIPINE [Concomitant]
     Indication: BLOOD PRESSURE
     Dosage: DAILY PRN IF SBP GREATER OR EQUAL TO 100
  11. ATENOLOL [Concomitant]
     Indication: CORONARY ARTERY DISEASE
  12. ALLOPURINOL [Concomitant]
     Indication: PRODUCT USED FOR UNKNOWN INDICATION
  13. ISOSORBIDE MONONITRATE [Concomitant]
     Indication: PRODUCT USED FOR UNKNOWN INDICATION
  14. HUMIRA [Suspect]
     Indication: ANKYLOSING SPONDYLITIS
  15. CITALOPRAM [Concomitant]
     Indication: PRODUCT USED FOR UNKNOWN INDICATION
  16. COLCRYS [Concomitant]
     Indication: PRODUCT USED FOR UNKNOWN INDICATION
  17. EFFIENT [Concomitant]
     Indication: PRODUCT USED FOR UNKNOWN INDICATION
  18. MULTI-VITAMIN [Concomitant]
     Indication: PRODUCT USED FOR UNKNOWN INDICATION

REACTIONS (11)
  - DYSPNOEA [None]
  - HYPERTENSION [None]
  - MYCOBACTERIUM MARINUM INFECTION [None]
  - INJECTION SITE HAEMORRHAGE [None]
  - LACERATION [None]
  - INJECTION SITE NODULE [None]
  - ATRIOVENTRICULAR BLOCK [None]
  - PRINZMETAL ANGINA [None]
  - GOUT [None]
  - CHEST PAIN [None]
  - INJECTION SITE PAIN [None]
